FAERS Safety Report 4442886-0 (Version None)
Quarter: 2004Q3

REPORT INFORMATION
  Report Type: 
  Country: None (occurrence: None)
  Receive Date: 20040907
  Receipt Date: 20040907
  Transmission Date: 20050211
  Serious: Yes (Death)
  Sender: FDA-Public Use
  Company Number: None

PATIENT
  Age: 45 Year
  Sex: Male
  Weight: 156.5 kg

DRUGS (8)
  1. PROPAFENONE HCL [Suspect]
     Indication: ATRIAL FIBRILLATION
     Dosage: 150 MG PO TID
     Route: 048
     Dates: start: 20040810
  2. LOPRESSER [Concomitant]
  3. LASIX [Concomitant]
  4. COUMADIN [Concomitant]
  5. CLEOCIN HCL [Concomitant]
  6. PROTONIX [Concomitant]
  7. PROVENTIL [Concomitant]
  8. MAGOX [Concomitant]

REACTIONS (9)
  - BLOOD GLUCOSE DECREASED [None]
  - BLOOD PRESSURE DECREASED [None]
  - BLOOD PRESSURE FLUCTUATION [None]
  - CARDIO-RESPIRATORY ARREST [None]
  - COMA [None]
  - HYPERKALAEMIA [None]
  - HYPOGLYCAEMIA [None]
  - METABOLIC ACIDOSIS [None]
  - SKIN DISCOLOURATION [None]
